FAERS Safety Report 4677848-1 (Version None)
Quarter: 2005Q2

REPORT INFORMATION
  Report Type: 
  Country: None (occurrence: None)
  Receive Date: 20050527
  Receipt Date: 20050527
  Transmission Date: 20051028
  Serious: No
  Sender: FDA-Public Use
  Company Number: None

PATIENT
  Age: 60 Year
  Sex: Female
  Weight: 65.7716 kg

DRUGS (2)
  1. LEVAQUIN [Suspect]
     Indication: BRONCHITIS
     Dosage: ONE A DAY FOR SEVEN DAYS
     Dates: start: 20050317, end: 20050323
  2. LEVAQUIN [Suspect]
     Indication: PNEUMONIA
     Dosage: ONE A DAY FOR SEVEN DAYS
     Dates: start: 20050317, end: 20050323

REACTIONS (5)
  - BURNING SENSATION [None]
  - FATIGUE [None]
  - JOINT SWELLING [None]
  - MYALGIA [None]
  - PAIN IN EXTREMITY [None]
